FAERS Safety Report 7743948-2 (Version None)
Quarter: 2011Q3

REPORT INFORMATION
  Report Type: 
  Country: None (occurrence: None)
  Receive Date: 20110912
  Receipt Date: 20110902
  Transmission Date: 20111222
  Serious: Yes (Life-Threatening)
  Sender: FDA-Public Use
  Company Number: FR-GLAXOSMITHKLINE-B0744221A

PATIENT
  Sex: Male

DRUGS (14)
  1. TRAMADOL HCL [Concomitant]
     Route: 065
  2. AMARYL [Concomitant]
     Route: 065
     Dates: end: 20110801
  3. LYRICA [Concomitant]
     Route: 065
     Dates: end: 20110803
  4. AUGMENTIN '125' [Concomitant]
     Indication: LUNG DISORDER
     Route: 065
  5. PAROXETINE HCL [Suspect]
     Indication: PRODUCT USED FOR UNKNOWN INDICATION
     Dosage: 1UNIT PER DAY
     Route: 048
     Dates: end: 20110801
  6. ACETAMINOPHEN [Concomitant]
     Route: 065
  7. TRANSIPEG [Concomitant]
     Route: 065
  8. CALCIPARINE [Suspect]
     Indication: PRODUCT USED FOR UNKNOWN INDICATION
     Dosage: 12500IU THREE TIMES PER DAY
     Route: 058
     Dates: start: 20110729, end: 20110801
  9. LIORESAL [Concomitant]
     Route: 065
     Dates: end: 20110802
  10. FUROSEMIDE [Concomitant]
     Route: 065
  11. PLAVIX [Suspect]
     Indication: PRODUCT USED FOR UNKNOWN INDICATION
     Dosage: 75MG PER DAY
     Route: 048
     Dates: end: 20110803
  12. LOVENOX [Suspect]
     Indication: PRODUCT USED FOR UNKNOWN INDICATION
     Dosage: 4000IU PER DAY
     Route: 058
     Dates: start: 20110801, end: 20110803
  13. GLUCOPHAGE [Concomitant]
     Route: 065
     Dates: end: 20110801
  14. NEXIUM [Concomitant]
     Route: 065

REACTIONS (5)
  - SHOCK HAEMORRHAGIC [None]
  - PETECHIAE [None]
  - ANAEMIA [None]
  - RECTAL HAEMORRHAGE [None]
  - HYPOTENSION [None]
